FAERS Safety Report 24040608 (Version 1)
Quarter: 2024Q3

REPORT INFORMATION
  Report Type: Spontaneous
  Country: PT (occurrence: PT)
  Receive Date: 20240702
  Receipt Date: 20240702
  Transmission Date: 20241017
  Serious: Yes (Hospitalization)
  Sender: BAYER
  Company Number: PT-BAYER-2024A094572

PATIENT
  Age: 45 Year
  Sex: Female

DRUGS (4)
  1. DIENOGEST\ESTRADIOL VALERATE [Suspect]
     Active Substance: DIENOGEST\ESTRADIOL VALERATE
     Route: 048
  2. LISINOPRIL [Concomitant]
     Active Substance: LISINOPRIL
     Dosage: 20 MG
     Route: 048
  3. ATORVASTATIN [Concomitant]
     Active Substance: ATORVASTATIN
     Dosage: 20 MG
     Route: 048
  4. TRAZODONE HYDROCHLORIDE [Concomitant]
     Active Substance: TRAZODONE HYDROCHLORIDE
     Dosage: 150 MG
     Route: 048

REACTIONS (1)
  - Pulmonary endarterectomy [None]
